FAERS Safety Report 6912804-1 (Version None)
Quarter: 2010Q3

REPORT INFORMATION
  Report Type: 
  Country: None (occurrence: None)
  Receive Date: 20100806
  Receipt Date: 20090113
  Transmission Date: 20110219
  Serious: No
  Sender: FDA-Public Use
  Company Number: US-PFIZER INC-2009155716

PATIENT
  Sex: Female

DRUGS (1)
  1. DETROL LA [Suspect]
     Dosage: UNK
     Dates: start: 20090101

REACTIONS (3)
  - CONSTIPATION [None]
  - DRY MOUTH [None]
  - OROPHARYNGEAL PAIN [None]
